FAERS Safety Report 9129316 (Version 1)
Quarter: 2013Q1

REPORT INFORMATION
  Report Type: Spontaneous
  Country: KR (occurrence: KR)
  Receive Date: 20130125
  Receipt Date: 20130125
  Transmission Date: 20140127
  Serious: Yes (Hospitalization)
  Sender: FDA-Public Use
  Company Number: PHHY2013KR006108

PATIENT
  Age: 63 Year
  Sex: Female

DRUGS (2)
  1. HYDROXYCHLOROQUINE [Suspect]
     Indication: RHEUMATOID ARTHRITIS
     Dosage: 164 G, CUMULATIVE DOSE
  2. PREDNISOLONE [Concomitant]

REACTIONS (12)
  - Pulmonary arterial hypertension [Recovered/Resolved]
  - Cardiomyopathy [Recovered/Resolved]
  - Atrioventricular block [Recovered/Resolved]
  - Cardiomegaly [Recovered/Resolved]
  - Right ventricular hypertrophy [Recovered/Resolved]
  - Diastolic dysfunction [Recovered/Resolved]
  - Mitral valve incompetence [Recovered/Resolved]
  - Aortic valve incompetence [Recovered/Resolved]
  - Dyspnoea [Recovered/Resolved]
  - Face oedema [Recovered/Resolved]
  - Oedema peripheral [Recovered/Resolved]
  - Weight increased [Recovered/Resolved]
